FAERS Safety Report 25926528 (Version 1)
Quarter: 2025Q4

REPORT INFORMATION
  Report Type: Spontaneous
  Country: US (occurrence: US)
  Receive Date: 20251015
  Receipt Date: 20251015
  Transmission Date: 20260117
  Serious: No
  Sender: BridgeBio Pharma
  Company Number: US-BRIDGEBIO-25US001808

PATIENT

DRUGS (1)
  1. ATTRUBY [Suspect]
     Active Substance: ACORAMIDIS HYDROCHLORIDE
     Indication: Product used for unknown indication
     Dosage: 2 DOSAGE FORM, BID
     Route: 048

REACTIONS (2)
  - Diarrhoea [Unknown]
  - Weight decreased [Unknown]
